FAERS Safety Report 4772956-9 (Version None)
Quarter: 2005Q3

REPORT INFORMATION
  Report Type: 
  Country: None (occurrence: None)
  Receive Date: 20050916
  Receipt Date: 20050907
  Transmission Date: 20060218
  Serious: Yes (Life-Threatening, Other)
  Sender: FDA-Public Use
  Company Number: 200507829

PATIENT
  Age: 87 Year
  Sex: Female

DRUGS (2)
  1. ALPHAGAN [Suspect]
     Indication: GLAUCOMA
  2. ACE INHIBITOR [Concomitant]

REACTIONS (1)
  - BRADYCARDIA [None]
